FAERS Safety Report 22125999 (Version 1)
Quarter: 2023Q1

REPORT INFORMATION
  Report Type: Spontaneous
  Country: US (occurrence: US)
  Receive Date: 20230322
  Receipt Date: 20230322
  Transmission Date: 20230417
  Serious: No
  Sender: FDA-Public Use
  Company Number: US-ALLERGAN-2212924US

PATIENT

DRUGS (1)
  1. LUMIGAN [Suspect]
     Active Substance: BIMATOPROST
     Indication: Product used for unknown indication
     Dosage: UNK, QD
     Dates: start: 2021

REACTIONS (3)
  - Therapeutic response unexpected [Unknown]
  - Eyelash thickening [Unknown]
  - Growth of eyelashes [Unknown]
